FAERS Safety Report 13495436 (Version 1)
Quarter: 2017Q2

REPORT INFORMATION
  Report Type: Spontaneous
  Country: US (occurrence: US)
  Receive Date: 20170427
  Receipt Date: 20170427
  Transmission Date: 20170830
  Serious: Yes (Hospitalization)
  Sender: FDA-Public Use
  Company Number: None

PATIENT
  Age: 70 Year
  Sex: Male

DRUGS (1)
  1. NOVOLIN R [Suspect]
     Active Substance: INSULIN HUMAN
     Indication: MALNUTRITION
     Dosage: 61 UNITS DAILY IV
     Route: 042
     Dates: start: 20161015, end: 20161016

REACTIONS (5)
  - Unresponsive to stimuli [None]
  - Mental status changes [None]
  - Treatment noncompliance [None]
  - Hypoglycaemia [None]
  - Blood glucose increased [None]

NARRATIVE: CASE EVENT DATE: 20161017
